FAERS Safety Report 6817775-4 (Version None)
Quarter: 2010Q3

REPORT INFORMATION
  Report Type: 
  Country: None (occurrence: None)
  Receive Date: 20100706
  Receipt Date: 20100309
  Transmission Date: 20110219
  Serious: Yes (Other)
  Sender: FDA-Public Use
  Company Number: US-ASTRAZENECA-2007UW27343

PATIENT
  Age: 12733 Day
  Sex: Male
  Weight: 156.5 kg

DRUGS (40)
  1. SEROQUEL [Suspect]
     Indication: TINNITUS
     Dosage: 100 TO 900 MG
     Route: 048
     Dates: start: 19991206
  2. SEROQUEL [Suspect]
     Indication: SCHIZOPHRENIA
     Dosage: 100 TO 900 MG
     Route: 048
     Dates: start: 19991206
  3. SEROQUEL [Suspect]
     Indication: PARANOIA
     Dosage: 100 TO 900 MG
     Route: 048
     Dates: start: 19991206
  4. SEROQUEL [Suspect]
     Dosage: 100MG, 200MG, 300MG, 900MG
     Route: 048
     Dates: start: 20000101
  5. SEROQUEL [Suspect]
     Dosage: 100MG, 200MG, 300MG, 900MG
     Route: 048
     Dates: start: 20000101
  6. SEROQUEL [Suspect]
     Dosage: 100MG, 200MG, 300MG, 900MG
     Route: 048
     Dates: start: 20000101
  7. SEROQUEL [Suspect]
     Route: 048
     Dates: start: 20070515
  8. SEROQUEL [Suspect]
     Route: 048
     Dates: start: 20070515
  9. SEROQUEL [Suspect]
     Route: 048
     Dates: start: 20070515
  10. ABILIFY [Concomitant]
     Dosage: 15 TO 30 MG
     Dates: start: 20040126
  11. GEODON [Concomitant]
     Dates: start: 20020101
  12. HALOPERIDOL [Concomitant]
     Dates: start: 20070108
  13. RISPERDAL [Concomitant]
     Indication: DEPRESSION
     Dates: start: 20020101
  14. RISPERDAL [Concomitant]
     Dates: start: 20030225
  15. THORAZINE [Concomitant]
  16. PROZAC [Concomitant]
  17. VALPROIC ACID [Concomitant]
     Dates: start: 20070205
  18. CELEXA [Concomitant]
     Dosage: 40 TO 60 MG
     Route: 048
     Dates: start: 20060801
  19. CELEXA [Concomitant]
     Dates: start: 20070101
  20. KLONOPIN [Concomitant]
     Dosage: 2 TO 4 MG
     Dates: start: 20060801
  21. KLONOPIN [Concomitant]
     Dates: start: 20070101
  22. HBM [Concomitant]
  23. WELLBUTRIN SR [Concomitant]
     Dates: start: 20020101
  24. WELLBUTRIN SR [Concomitant]
     Dates: start: 20040430
  25. LEXAPRO [Concomitant]
     Dates: start: 20020101
  26. LEXAPRO [Concomitant]
     Dosage: 10 TO 20 MG
     Dates: start: 20040126
  27. TRAZODONE HYDROCHLORIDE [Concomitant]
     Dates: start: 20000101
  28. TRAZODONE HYDROCHLORIDE [Concomitant]
     Dates: start: 20070420
  29. DEPAKOTE [Concomitant]
     Indication: DEPRESSION
     Dates: start: 20060101
  30. DEPAKOTE [Concomitant]
     Dosage: 500 TO 1500 MG
     Dates: start: 19991203
  31. PAXIL [Concomitant]
     Dates: start: 20000101
  32. TEMAZEPAM [Concomitant]
     Dates: start: 20040126
  33. XANAX [Concomitant]
     Indication: DEPRESSION
     Dosage: 1 TO 3 MG
     Dates: start: 20030326
  34. HYDROXYZINE HCL [Concomitant]
     Dates: start: 20070112
  35. LOVASTATIN [Concomitant]
     Dates: start: 20070205
  36. BENZTROPINE MESYLATE [Concomitant]
     Dates: start: 20070205
  37. LYRICA [Concomitant]
     Dates: start: 20070503
  38. EFFEXOR XR [Concomitant]
     Indication: DEPRESSION
     Dates: start: 20000614
  39. VICODIN [Concomitant]
     Indication: PAIN
     Dosage: 5/500, 7.5/500 MG
     Dates: start: 20070109
  40. OXYCODONE HCL AND ACETAMINOPHEN [Concomitant]
     Dosage: 7.5/500MG
     Dates: start: 20070425

REACTIONS (11)
  - BACK PAIN [None]
  - BLOOD TRIGLYCERIDES INCREASED [None]
  - BORDERLINE PERSONALITY DISORDER [None]
  - CARPAL TUNNEL SYNDROME [None]
  - DIABETES MELLITUS [None]
  - DIABETES MELLITUS INADEQUATE CONTROL [None]
  - GALLBLADDER DISORDER [None]
  - OBESITY [None]
  - SLEEP APNOEA SYNDROME [None]
  - TYPE 2 DIABETES MELLITUS [None]
  - WEIGHT INCREASED [None]
